FAERS Safety Report 9004490 (Version 2)
Quarter: 2013Q1

REPORT INFORMATION
  Report Type: Spontaneous
  Country: US (occurrence: US)
  Receive Date: 20130108
  Receipt Date: 20130204
  Transmission Date: 20140127
  Serious: Yes (Other)
  Sender: FDA-Public Use
  Company Number: US-ASTRAZENECA-2013SE00450

PATIENT
  Age: 51 Year
  Sex: Male

DRUGS (54)
  1. SEROQUEL [Suspect]
     Indication: BIPOLAR DISORDER
     Route: 048
     Dates: start: 2007
  2. SEROQUEL [Suspect]
     Indication: BIPOLAR DISORDER
     Route: 048
     Dates: start: 2007
  3. SEROQUEL [Suspect]
     Indication: BIPOLAR DISORDER
     Route: 048
  4. SEROQUEL [Suspect]
     Indication: BIPOLAR DISORDER
     Route: 048
  5. SEROQUEL [Suspect]
     Indication: BIPOLAR DISORDER
     Dosage: 0.5 TO 3.0 TABLETS AT BEDTIME
     Route: 048
  6. SEROQUEL [Suspect]
     Indication: BIPOLAR DISORDER
     Dosage: 0.5 TO 3.0 TABLETS AT BEDTIME
     Route: 048
  7. SEROQUEL [Suspect]
     Indication: BIPOLAR DISORDER
     Dosage: 1 TO 2 AT NIGHT
     Route: 048
  8. SEROQUEL [Suspect]
     Indication: BIPOLAR DISORDER
     Dosage: 1 TO 2 AT NIGHT
     Route: 048
  9. SEROQUEL [Suspect]
     Indication: BIPOLAR DISORDER
     Route: 048
  10. SEROQUEL [Suspect]
     Indication: BIPOLAR DISORDER
     Route: 048
  11. SEROQUEL [Suspect]
     Indication: BIPOLAR DISORDER
     Dosage: 300 TO 600 MG DAILY
     Route: 048
  12. SEROQUEL [Suspect]
     Indication: BIPOLAR DISORDER
     Dosage: 300 TO 600 MG DAILY
     Route: 048
  13. SEROQUEL [Suspect]
     Indication: BIPOLAR DISORDER
     Route: 048
  14. SEROQUEL [Suspect]
     Indication: BIPOLAR DISORDER
     Route: 048
  15. AMITRIPTYLINE [Concomitant]
     Route: 048
  16. ATIVAN [Concomitant]
     Indication: TREMOR
     Route: 048
  17. ATIVAN [Concomitant]
     Indication: SLEEP DISORDER
     Route: 048
  18. ATIVAN [Concomitant]
     Indication: ANXIETY
     Route: 048
  19. ATIVAN [Concomitant]
     Indication: TREMOR
     Route: 048
  20. ATIVAN [Concomitant]
     Indication: SLEEP DISORDER
     Route: 048
  21. ATIVAN [Concomitant]
     Indication: ANXIETY
     Route: 048
  22. DEPLIN [Concomitant]
     Route: 048
  23. LAMICTAL [Concomitant]
     Route: 048
  24. LATUDA [Concomitant]
     Route: 048
  25. LITHIUM [Concomitant]
     Route: 048
  26. TEGRETOL [Concomitant]
     Route: 048
     Dates: start: 200702
  27. TEGRETOL [Concomitant]
     Route: 048
  28. TEGRETOL [Concomitant]
     Route: 048
  29. PAXIL [Concomitant]
     Indication: SUICIDAL IDEATION
  30. PAXIL [Concomitant]
     Indication: DEPRESSION
  31. ANTIDEPRESSANTS [Concomitant]
  32. DEPAKOTE [Concomitant]
     Indication: HEADACHE
     Dates: start: 2003
  33. DEPAKOTE [Concomitant]
     Indication: HEADACHE
     Dates: start: 2004
  34. DEPAKOTE [Concomitant]
     Indication: HEADACHE
  35. NEURONTIN [Concomitant]
     Indication: FEELING OF RELAXATION
  36. NEURONTIN [Concomitant]
     Indication: SLEEP DISORDER
  37. LEXAPRO [Concomitant]
     Dosage: 10 OR 20 MG DAILY TO BE REDUCED
  38. WELLBUTRIN [Concomitant]
     Dosage: VARIABLE DOSE USED AS NEEDED/TO BE REDUCED
  39. ZYRTEC [Concomitant]
     Indication: MULTIPLE ALLERGIES
  40. OMEGA 3 FATTY ACIDS [Concomitant]
     Dosage: 1 OR 2 GM DAILY
  41. LAMICTAL STARTER PACK [Concomitant]
  42. LAMICTAL STARTER PACK [Concomitant]
  43. LAMICTAL STARTER PACK [Concomitant]
     Dosage: 300 TO 400 MG
  44. PROVIGIL [Concomitant]
     Indication: FATIGUE
  45. LUNESTA [Concomitant]
  46. SERZONE [Concomitant]
  47. EFFEXOR [Concomitant]
  48. REMERON [Concomitant]
  49. ZYPREXA [Concomitant]
     Indication: INSOMNIA
  50. TRAZODONE [Concomitant]
     Indication: INSOMNIA
  51. ELAVIL [Concomitant]
  52. LITHOBID [Concomitant]
  53. LORAZ [Concomitant]
  54. CARBAMAZ [Concomitant]

REACTIONS (66)
  - Irritable bowel syndrome [Unknown]
  - Diabetic ketoacidosis [Recovering/Resolving]
  - Hypoxia [Unknown]
  - Suicidal ideation [Unknown]
  - Rectal haemorrhage [Unknown]
  - Pneumonia [Unknown]
  - Aphasia [Unknown]
  - Pain in extremity [Unknown]
  - Feeling abnormal [Unknown]
  - Nervousness [Unknown]
  - Weight decreased [Unknown]
  - Tachyphrenia [Unknown]
  - Self injurious behaviour [Unknown]
  - Depression [Unknown]
  - Hypomania [Unknown]
  - Pain in extremity [Unknown]
  - Generalised anxiety disorder [Unknown]
  - Negative thoughts [Unknown]
  - Adverse event [Unknown]
  - Stress [Unknown]
  - Mental impairment [Unknown]
  - Depressed level of consciousness [Unknown]
  - Cognitive disorder [Unknown]
  - Mood altered [Unknown]
  - Headache [Unknown]
  - Memory impairment [Unknown]
  - Frustration [Unknown]
  - Disturbance in attention [Unknown]
  - Insomnia [Unknown]
  - Pollakiuria [Unknown]
  - Drug effect prolonged [Unknown]
  - Thirst [Unknown]
  - Neuralgia [Unknown]
  - Agitation [Unknown]
  - Diabetes mellitus [Unknown]
  - Panic attack [Unknown]
  - Seasonal allergy [Unknown]
  - Anhedonia [Unknown]
  - Abnormal behaviour [Unknown]
  - Musculoskeletal pain [Unknown]
  - Pain [Unknown]
  - Insomnia [Unknown]
  - Back pain [Unknown]
  - Sinusitis [Unknown]
  - Ear infection [Unknown]
  - Insomnia [Unknown]
  - Snoring [Unknown]
  - Hypersomnia [Unknown]
  - Dry mouth [Unknown]
  - Constipation [Unknown]
  - Somnolence [Unknown]
  - Sedation [Unknown]
  - Restlessness [Unknown]
  - Muscle spasms [Unknown]
  - Abnormal dreams [Unknown]
  - Nightmare [Unknown]
  - Weight increased [Unknown]
  - Fatigue [Unknown]
  - Tremor [Unknown]
  - Muscle contractions involuntary [Unknown]
  - Irritability [Unknown]
  - Somnambulism [Unknown]
  - Dizziness [Unknown]
  - Somnolence [Unknown]
  - Increased appetite [Unknown]
  - Asthenia [Unknown]
